FAERS Safety Report 18223790 (Version 1)
Quarter: 2020Q3

REPORT INFORMATION
  Report Type: Spontaneous
  Country: AR (occurrence: AR)
  Receive Date: 20200902
  Receipt Date: 20200902
  Transmission Date: 20201103
  Serious: Yes (Hospitalization, Other)
  Sender: FDA-Public Use
  Company Number: NVSC2020AR226392

PATIENT
  Sex: Male

DRUGS (6)
  1. TEGRETOL [Suspect]
     Active Substance: CARBAMAZEPINE
     Indication: EPILEPSY
     Dosage: 200 MG, QD
     Route: 065
     Dates: end: 202004
  2. ALPLAX [Concomitant]
     Active Substance: ALPRAZOLAM
     Indication: PRODUCT USED FOR UNKNOWN INDICATION
     Dosage: 1 MG (TOW OR THREE TIMES PER DAY)
     Route: 065
  3. GLIOTEN [Concomitant]
     Indication: PRODUCT USED FOR UNKNOWN INDICATION
     Dosage: UNK
     Route: 065
  4. TEGRETOL [Suspect]
     Active Substance: CARBAMAZEPINE
     Indication: MIGRAINE
     Dosage: 200 MG, BID (AT THE BEGINING)
     Route: 065
  5. TEGRETOL [Suspect]
     Active Substance: CARBAMAZEPINE
     Dosage: 200 MG, QD
     Route: 065
  6. INCORIL [Concomitant]
     Indication: PRODUCT USED FOR UNKNOWN INDICATION
     Dosage: 120 UNK, TID
     Route: 065

REACTIONS (13)
  - Arrhythmia [Unknown]
  - Skin discolouration [Unknown]
  - Product dose omission issue [Unknown]
  - Epilepsy [Recovering/Resolving]
  - Ocular discomfort [Recovering/Resolving]
  - Feeling abnormal [Recovering/Resolving]
  - Headache [Recovering/Resolving]
  - Blood pressure abnormal [Unknown]
  - Heart rate increased [Unknown]
  - Product supply issue [Unknown]
  - Aortic aneurysm [Unknown]
  - Cardiac disorder [Unknown]
  - Vision blurred [Recovering/Resolving]
